FAERS Safety Report 7065918-2 (Version None)
Quarter: 2010Q4

REPORT INFORMATION
  Report Type: 
  Country: None (occurrence: None)
  Receive Date: 20101027
  Receipt Date: 20100903
  Transmission Date: 20110411
  Serious: Yes (Hospitalization)
  Sender: FDA-Public Use
  Company Number: JP-MERCK-1009USA00835

PATIENT
  Age: 86 Year
  Sex: Female

DRUGS (6)
  1. FOSAMAX [Suspect]
     Indication: OSTEOPOROSIS
     Route: 048
  2. AMLODIPINE BESYLATE [Concomitant]
     Route: 048
  3. TAGAMET [Concomitant]
     Route: 048
  4. MAGNESIUM OXIDE [Concomitant]
     Route: 048
  5. SELBEX [Concomitant]
     Route: 048
  6. LOXONIN [Concomitant]
     Route: 048

REACTIONS (1)
  - OSTEOMYELITIS [None]
